FAERS Safety Report 9856342 (Version 2)
Quarter: 2014Q1

REPORT INFORMATION
  Report Type: Spontaneous
  Country: US (occurrence: CA)
  Receive Date: 20140130
  Receipt Date: 20140307
  Transmission Date: 20141002
  Serious: Yes (Hospitalization)
  Sender: FDA-Public Use
  Company Number: CA-FRI-1000053249

PATIENT
  Age: 50 Year
  Sex: Female
  Weight: 106.4 kg

DRUGS (5)
  1. ROFLUMILAST [Suspect]
     Indication: CHRONIC OBSTRUCTIVE PULMONARY DISEASE
     Dosage: 500 MCG
     Route: 048
     Dates: start: 20130805
  2. TIOTROPIUM [Concomitant]
     Dates: start: 2010
  3. ADVAIR [Concomitant]
     Dates: start: 2010
  4. OXYGEN [Concomitant]
     Dates: start: 2011
  5. SALBUTAMOL [Concomitant]
     Dates: start: 2010

REACTIONS (2)
  - Dyspnoea [Recovered/Resolved]
  - Chronic obstructive pulmonary disease [Recovered/Resolved]
